FAERS Safety Report 12886980 (Version 4)
Quarter: 2016Q4

REPORT INFORMATION
  Report Type: Report from Study
  Country: None (occurrence: CH)
  Receive Date: 20161026
  Receipt Date: 20161101
  Transmission Date: 20170207
  Serious: Yes (Death, Other)
  Sender: FDA-Public Use
  Company Number: CH-ABBVIE-16P-151-1763133-00

PATIENT
  Age: 82 Year
  Sex: Female

DRUGS (1)
  1. DUODOPA [Suspect]
     Active Substance: CARBIDOPA\LEVODOPA
     Indication: PARKINSON^S DISEASE
     Dosage: AM DOSE:4.5 ML, CONT.RATE AM:3.9 ML/H, CONT.RATE HS:2.9 ML/H, E.D.:1.5 ML, 24H THERAPY
     Route: 050
     Dates: start: 20140923, end: 20161024

REACTIONS (2)
  - Abdominal pain [Fatal]
  - Gastric neoplasm [Fatal]

NARRATIVE: CASE EVENT DATE: 20161024
